FAERS Safety Report 25150053 (Version 2)
Quarter: 2025Q2

REPORT INFORMATION
  Report Type: Spontaneous
  Country: FR (occurrence: FR)
  Receive Date: 20250402
  Receipt Date: 20250404
  Transmission Date: 20250717
  Serious: Yes (Hospitalization)
  Sender: MYLAN
  Company Number: FR-MYLANLABS-2025M1028168

PATIENT
  Age: 74 Year
  Sex: Male

DRUGS (36)
  1. METHOTREXATE [Interacting]
     Active Substance: METHOTREXATE
     Indication: Psoriatic arthropathy
     Dosage: 15 MILLIGRAM, QW
  2. METHOTREXATE [Interacting]
     Active Substance: METHOTREXATE
     Dosage: 15 MILLIGRAM, QW
     Route: 048
  3. METHOTREXATE [Interacting]
     Active Substance: METHOTREXATE
     Dosage: 15 MILLIGRAM, QW
     Route: 048
  4. METHOTREXATE [Interacting]
     Active Substance: METHOTREXATE
     Dosage: 15 MILLIGRAM, QW
  5. PANTOPRAZOLE [Interacting]
     Active Substance: PANTOPRAZOLE
     Indication: Product used for unknown indication
  6. PANTOPRAZOLE [Interacting]
     Active Substance: PANTOPRAZOLE
     Route: 065
  7. PANTOPRAZOLE [Interacting]
     Active Substance: PANTOPRAZOLE
     Route: 065
  8. PANTOPRAZOLE [Interacting]
     Active Substance: PANTOPRAZOLE
  9. FUROSEMIDE [Interacting]
     Active Substance: FUROSEMIDE
     Indication: Cardiac failure
  10. FUROSEMIDE [Interacting]
     Active Substance: FUROSEMIDE
     Indication: Chronic kidney disease
     Route: 065
  11. FUROSEMIDE [Interacting]
     Active Substance: FUROSEMIDE
     Route: 065
  12. FUROSEMIDE [Interacting]
     Active Substance: FUROSEMIDE
  13. FOLIC ACID [Suspect]
     Active Substance: FOLIC ACID
     Indication: Haematotoxicity
  14. FOLIC ACID [Suspect]
     Active Substance: FOLIC ACID
     Indication: Prophylaxis
     Route: 065
  15. FOLIC ACID [Suspect]
     Active Substance: FOLIC ACID
     Route: 065
  16. FOLIC ACID [Suspect]
     Active Substance: FOLIC ACID
  17. CEFTAZIDIME [Suspect]
     Active Substance: CEFTAZIDIME
     Indication: Product used for unknown indication
  18. CEFTAZIDIME [Suspect]
     Active Substance: CEFTAZIDIME
     Route: 065
  19. CEFTAZIDIME [Suspect]
     Active Substance: CEFTAZIDIME
     Route: 065
  20. CEFTAZIDIME [Suspect]
     Active Substance: CEFTAZIDIME
  21. MORPHINE [Suspect]
     Active Substance: MORPHINE
     Indication: Analgesic therapy
  22. MORPHINE [Suspect]
     Active Substance: MORPHINE
     Route: 065
  23. MORPHINE [Suspect]
     Active Substance: MORPHINE
     Route: 065
  24. MORPHINE [Suspect]
     Active Substance: MORPHINE
  25. BISOPROLOL [Concomitant]
     Active Substance: BISOPROLOL
     Indication: Cardiac failure
  26. BISOPROLOL [Concomitant]
     Active Substance: BISOPROLOL
     Route: 065
  27. BISOPROLOL [Concomitant]
     Active Substance: BISOPROLOL
     Route: 065
  28. BISOPROLOL [Concomitant]
     Active Substance: BISOPROLOL
  29. APIXABAN [Concomitant]
     Active Substance: APIXABAN
     Indication: Product used for unknown indication
  30. APIXABAN [Concomitant]
     Active Substance: APIXABAN
     Route: 065
  31. APIXABAN [Concomitant]
     Active Substance: APIXABAN
     Route: 065
  32. APIXABAN [Concomitant]
     Active Substance: APIXABAN
  33. RAMIPRIL [Concomitant]
     Active Substance: RAMIPRIL
     Indication: Cardiac failure
  34. RAMIPRIL [Concomitant]
     Active Substance: RAMIPRIL
     Route: 065
  35. RAMIPRIL [Concomitant]
     Active Substance: RAMIPRIL
     Route: 065
  36. RAMIPRIL [Concomitant]
     Active Substance: RAMIPRIL

REACTIONS (6)
  - Haematotoxicity [Unknown]
  - Pancytopenia [Unknown]
  - Myelosuppression [Unknown]
  - Drug interaction [Unknown]
  - Drug ineffective [Unknown]
  - Overdose [Unknown]
